FAERS Safety Report 5913026-3 (Version None)
Quarter: 2008Q4

REPORT INFORMATION
  Report Type: 
  Country: None (occurrence: None)
  Receive Date: 20081008
  Receipt Date: 20080930
  Transmission Date: 20090506
  Serious: Yes (Hospitalization, Other)
  Sender: FDA-Public Use
  Company Number: US-PFIZER INC-2008083191

PATIENT
  Sex: Female
  Weight: 59.09 kg

DRUGS (12)
  1. CHANTIX [Suspect]
     Indication: SMOKING CESSATION THERAPY
     Dates: start: 20080206
  2. AMLODIPINE [Concomitant]
  3. RAMIPRIL [Concomitant]
  4. THEO-24 [Concomitant]
  5. HYOSCYAMINE [Concomitant]
     Dosage: TEXT:0.375
  6. PROMETHAZINE [Concomitant]
  7. BENZONATATE [Concomitant]
  8. ACETYLSALICYLIC ACID SRT [Concomitant]
     Dosage: FREQ:ONE A DAY
  9. MONTELUKAST SODIUM [Concomitant]
  10. NEXIUM [Concomitant]
  11. ADVAIR DISKUS 100/50 [Concomitant]
  12. INSULIN [Concomitant]

REACTIONS (7)
  - ABDOMINAL PAIN [None]
  - CHEST PAIN [None]
  - DEPRESSION [None]
  - DIVERTICULITIS [None]
  - DIZZINESS [None]
  - NAUSEA [None]
  - SOMNOLENCE [None]
